FAERS Safety Report 5828349-6 (Version None)
Quarter: 2008Q3

REPORT INFORMATION
  Report Type: 
  Country: None (occurrence: None)
  Receive Date: 20080729
  Receipt Date: 20080729
  Transmission Date: 20090109
  Serious: Yes (Hospitalization)
  Sender: FDA-Public Use
  Company Number: None

PATIENT
  Age: 75 Year
  Sex: Male
  Weight: 68.64 kg

DRUGS (2)
  1. WARFARIN SODIUM [Suspect]
     Dosage: 5 MG EVERY DAY PO
     Route: 048
     Dates: start: 20080425, end: 20080623
  2. TRIMETHOPRIM-SULFAMETHOXAZOLE [Suspect]
     Dosage: 800/160 MG BID PO
     Route: 048

REACTIONS (1)
  - INTERNATIONAL NORMALISED RATIO INCREASED [None]
